FAERS Safety Report 6926184-9 (Version None)
Quarter: 2010Q3

REPORT INFORMATION
  Report Type: 
  Country: None (occurrence: None)
  Receive Date: 20100813
  Receipt Date: 20100813
  Transmission Date: 20110219
  Serious: Yes (Hospitalization)
  Sender: FDA-Public Use
  Company Number: None

PATIENT
  Sex: Female

DRUGS (3)
  1. HERCEPTIN [Suspect]
     Indication: BREAST CANCER
  2. TYKERB [Suspect]
  3. XELODA [Suspect]

REACTIONS (6)
  - CARDIAC FAILURE CONGESTIVE [None]
  - CREPITATIONS [None]
  - DIARRHOEA [None]
  - FAECES DISCOLOURED [None]
  - HAEMORRHAGE [None]
  - THERMAL BURN [None]
